FAERS Safety Report 12791592 (Version 4)
Quarter: 2019Q3

REPORT INFORMATION
  Report Type: Spontaneous
  Country: US (occurrence: US)
  Receive Date: 20160929
  Receipt Date: 20190715
  Transmission Date: 20191004
  Serious: Yes (Congenital Anomaly, Other)
  Sender: FDA-Public Use
  Company Number: US-APOTEX-2016AP012543

PATIENT
  Age: 0 Day
  Sex: Female

DRUGS (2)
  1. PAXIL [Suspect]
     Active Substance: PAROXETINE HYDROCHLORIDE
     Indication: PRODUCT USED FOR UNKNOWN INDICATION
     Dosage: UNK
     Route: 064
  2. PAXIL [Suspect]
     Active Substance: PAROXETINE HYDROCHLORIDE
     Indication: DEPRESSION
     Dosage: UNK
     Route: 064
     Dates: start: 1997, end: 199803

REACTIONS (11)
  - Foetal growth restriction [Unknown]
  - Left ventricle outflow tract obstruction [Unknown]
  - Aortic stenosis [Unknown]
  - Hypertrophic cardiomyopathy [Unknown]
  - Aortic valve incompetence [Unknown]
  - Congenital aortic anomaly [Unknown]
  - Subvalvular aortic stenosis [Unknown]
  - Congenital pulmonary artery anomaly [Unknown]
  - Congenital aortic valve incompetence [Unknown]
  - Heart disease congenital [Unknown]
  - Foetal exposure during pregnancy [Unknown]

NARRATIVE: CASE EVENT DATE: 19980901
